FAERS Safety Report 5656255-9 (Version None)
Quarter: 2008Q1

REPORT INFORMATION
  Report Type: 
  Country: None (occurrence: None)
  Receive Date: 20080305
  Receipt Date: 20080220
  Transmission Date: 20080703
  Serious: Yes (Hospitalization)
  Sender: FDA-Public Use
  Company Number: 2008-00619

PATIENT
  Age: 54 Year
  Sex: Female

DRUGS (9)
  1. VELCADE [Suspect]
     Indication: MULTIPLE MYELOMA
  2. MELPHALAN(MELPHALAN) VIAL [Suspect]
     Indication: MULTIPLE MYELOMA
  3. PROPRANOLOL [Concomitant]
  4. VALACYCLOVIR HCL [Concomitant]
  5. PREVISCAN (FLUINDIONE) [Concomitant]
  6. DI-ANTALVIC  (PARACETAMOL, DEXTROPROPOXYPHENE HYDROCHLORIDE ) [Concomitant]
  7. PAROXETINE HCL [Concomitant]
  8. LEVOTHYROXINE SODIUM [Concomitant]
  9. .. [Concomitant]

REACTIONS (14)
  - ALANINE AMINOTRANSFERASE INCREASED [None]
  - ASPARTATE AMINOTRANSFERASE INCREASED [None]
  - CHEST PAIN [None]
  - COUGH [None]
  - DYSPNOEA [None]
  - GAMMA-GLUTAMYLTRANSFERASE INCREASED [None]
  - HAEMOGLOBIN DECREASED [None]
  - HEARING IMPAIRED [None]
  - HYPONATRAEMIA [None]
  - HYPOXIA [None]
  - IMMUNE SYSTEM DISORDER [None]
  - INTERNATIONAL NORMALISED RATIO INCREASED [None]
  - LUNG DISORDER [None]
  - SEPSIS [None]
